FAERS Safety Report 12238222 (Version 1)
Quarter: 2016Q2

REPORT INFORMATION
  Report Type: Spontaneous
  Country: AR (occurrence: AR)
  Receive Date: 20160405
  Receipt Date: 20160405
  Transmission Date: 20160815
  Serious: Yes (Other)
  Sender: FDA-Public Use
  Company Number: AR-ELI_LILLY_AND_COMPANY-AR201604000886

PATIENT
  Age: 74 Year
  Sex: Female

DRUGS (1)
  1. ERBITUX [Suspect]
     Active Substance: CETUXIMAB
     Indication: HEAD AND NECK CANCER
     Dosage: 500 MG, OTHER
     Route: 065
     Dates: start: 2010

REACTIONS (2)
  - Mesothelioma [Unknown]
  - Off label use [Unknown]

NARRATIVE: CASE EVENT DATE: 201512
